FAERS Safety Report 19119341 (Version 1)
Quarter: 2021Q2

REPORT INFORMATION
  Report Type: Spontaneous
  Country: US (occurrence: US)
  Receive Date: 20210406
  Receipt Date: 20210406
  Transmission Date: 20210717
  Serious: Yes (Hospitalization)
  Sender: FDA-Public Use
  Company Number: DL2021-02

PATIENT
  Age: 18 Year
  Sex: Female

DRUGS (2)
  1. MIFEPRISTONE TABLETS, 200 MG (DANCO LABS) [Suspect]
     Active Substance: MIFEPRISTONE
     Indication: ABORTION INDUCED
     Route: 048
     Dates: start: 20210312
  2. MISOPROSTOL TABLETS, 200 MCG [Suspect]
     Active Substance: MISOPROSTOL
     Route: 002
     Dates: start: 20210313

REACTIONS (9)
  - Pyrexia [None]
  - Abortion induced [None]
  - Post abortion haemorrhage [None]
  - Leukocytosis [None]
  - Anaemia [None]
  - Chlamydial infection [None]
  - Endometritis [None]
  - Abdominal pain [None]
  - Sepsis [None]

NARRATIVE: CASE EVENT DATE: 20210327
